FAERS Safety Report 4990254-5 (Version None)
Quarter: 2006Q2

REPORT INFORMATION
  Report Type: 
  Country: None (occurrence: None)
  Receive Date: 20060503
  Receipt Date: 20060406
  Transmission Date: 20061013
  Serious: Yes (Other)
  Sender: FDA-Public Use
  Company Number: US-GLAXOSMITHKLINE-A0600921A

PATIENT
  Age: 54 Year
  Sex: Female
  Weight: 77.5 kg

DRUGS (3)
  1. ADVAIR DISKUS 100/50 [Suspect]
     Indication: ASTHMA
     Route: 055
     Dates: end: 20051101
  2. ALBUTEROL [Suspect]
     Indication: ASTHMA
     Route: 055
  3. SEREVENT [Suspect]

REACTIONS (7)
  - ASTHMA [None]
  - BRONCHOSPASM [None]
  - COUGH [None]
  - DYSPHONIA [None]
  - DYSPNOEA EXERTIONAL [None]
  - HEART RATE INCREASED [None]
  - RESPIRATORY TRACT IRRITATION [None]
